FAERS Safety Report 4649645-4 (Version None)
Quarter: 2005Q2

REPORT INFORMATION
  Report Type: 
  Country: None (occurrence: None)
  Receive Date: 20050502
  Receipt Date: 20050428
  Transmission Date: 20051028
  Serious: Yes (Other)
  Sender: FDA-Public Use
  Company Number: AT-JNJFOC-20050406789

PATIENT
  Age: 68 Year
  Sex: Male

DRUGS (1)
  1. CLADRIBINE [Suspect]
     Indication: LYMPHOMA
     Route: 042

REACTIONS (1)
  - MYELODYSPLASTIC SYNDROME [None]
